FAERS Safety Report 6679709 (Version 20)
Quarter: 2013Q1

REPORT INFORMATION
  Report Type: Spontaneous
  Country: US (occurrence: US)
  Receive Date: 20080624
  Receipt Date: 20130102
  Transmission Date: 20140127
  Serious: Yes (Hospitalization, Congenital Anomaly, Other)
  Sender: FDA-Public Use
  Company Number: US-PFIZER INC-2008050012

PATIENT
  Sex: Male
  Weight: 3 kg

DRUGS (7)
  1. ZOLOFT [Suspect]
     Indication: POSTPARTUM DEPRESSION
     Dosage: UNK
     Route: 064
     Dates: start: 20000214
  2. ZOLOFT [Suspect]
     Dosage: 100 MG, UNK
     Route: 064
     Dates: start: 200201, end: 201112
  3. PRENATAL VITAMINS [Concomitant]
     Dosage: UNK
     Route: 064
  4. DULCOLAX [Concomitant]
     Dosage: UNK
     Route: 064
  5. ZOFRAN [Concomitant]
     Dosage: UNK
     Route: 064
  6. REGLAN [Concomitant]
     Dosage: UNK
     Route: 064
  7. TYLENOL [Concomitant]
     Dosage: UNK
     Route: 064

REACTIONS (26)
  - Foetal exposure during pregnancy [Unknown]
  - Fallot^s tetralogy [Unknown]
  - Gastrointestinal malformation [Unknown]
  - Speech disorder [Unknown]
  - Respiratory tract infection [Unknown]
  - Congenital oesophageal web [Unknown]
  - Hypokinesia [Unknown]
  - Cardiac arrest [Unknown]
  - Jaundice [Unknown]
  - Otitis media [Unknown]
  - Haematochezia [Unknown]
  - Bronchiolitis [Unknown]
  - Clostridium difficile infection [Unknown]
  - Brain stem glioma [Unknown]
  - Tricuspid valve incompetence [Unknown]
  - Pulmonary valve incompetence [Unknown]
  - Congenital anomaly [Unknown]
  - Mitral valve incompetence [Unknown]
  - Asthma [Unknown]
  - Eczema [Unknown]
  - Sinusitis [Unknown]
  - Dental caries [Unknown]
  - Dysplasia [Unknown]
  - Lung disorder [Unknown]
  - Aortic dilatation [Unknown]
  - Apraxia [Unknown]
